FAERS Safety Report 13798545 (Version 1)
Quarter: 2017Q3

REPORT INFORMATION
  Report Type: Spontaneous
  Country: DE (occurrence: DE)
  Receive Date: 20170727
  Receipt Date: 20170727
  Transmission Date: 20171127
  Serious: Yes (Other)
  Sender: FDA-Public Use
  Company Number: DE-PFIZER INC-2350114

PATIENT
  Age: 5 Year
  Sex: Female

DRUGS (5)
  1. TEMOZOLOMIDE. [Suspect]
     Active Substance: TEMOZOLOMIDE
     Indication: ANAPLASTIC ASTROCYTOMA
     Dosage: NOT REPORTED
     Route: 048
  2. CYCLOPHOSPHAMIDE. [Suspect]
     Active Substance: CYCLOPHOSPHAMIDE
     Indication: ANAPLASTIC ASTROCYTOMA
     Dosage: NOT REPORTED
  3. ETOPOSIDE. [Suspect]
     Active Substance: ETOPOSIDE
     Indication: ANAPLASTIC ASTROCYTOMA
     Dosage: NOT REPORTED
  4. CARBOPLATIN. [Suspect]
     Active Substance: CARBOPLATIN
     Indication: ANAPLASTIC ASTROCYTOMA
     Dosage: NOT REPORTED
  5. VINCRISTINE [Suspect]
     Active Substance: VINCRISTINE
     Indication: ANAPLASTIC ASTROCYTOMA
     Dosage: NOT REPORTED

REACTIONS (12)
  - Granulocytopenia [Unknown]
  - Hypersensitivity [Unknown]
  - Haemoglobinaemia [Unknown]
  - Neurotoxicity [Unknown]
  - Ototoxicity [Unknown]
  - Hepatotoxicity [Unknown]
  - Platelet count decreased [Unknown]
  - Gastrointestinal toxicity [Unknown]
  - Infection [Unknown]
  - Skin toxicity [Unknown]
  - Leukopenia [Unknown]
  - Nephropathy toxic [Unknown]
